FAERS Safety Report 8344725-4 (Version None)
Quarter: 2012Q2

REPORT INFORMATION
  Report Type: 
  Country: None (occurrence: None)
  Receive Date: 20120508
  Receipt Date: 20120426
  Transmission Date: 20120825
  Serious: Yes (Hospitalization)
  Sender: FDA-Public Use
  Company Number: IT-ROCHE-1066401

PATIENT
  Sex: Female
  Weight: 67 kg

DRUGS (4)
  1. COPEGUS [Suspect]
     Indication: HEPATITIS C
     Dates: start: 20110826, end: 20120106
  2. ESAPENT [Concomitant]
     Dates: start: 20110926, end: 20120106
  3. PEGASYS [Suspect]
     Indication: HEPATITIS C
     Dates: start: 20110826, end: 20120106
  4. BLINDED ALISPORIVIR [Suspect]
     Indication: HEPATITIS C
     Route: 048
     Dates: start: 20110826, end: 20120105

REACTIONS (2)
  - MALIGNANT MELANOMA [None]
  - CONCOMITANT DISEASE PROGRESSION [None]
